FAERS Safety Report 25836523 (Version 1)
Quarter: 2025Q3

REPORT INFORMATION
  Report Type: Spontaneous
  Country: CA (occurrence: CA)
  Receive Date: 20250923
  Receipt Date: 20250923
  Transmission Date: 20251021
  Serious: Yes (Other)
  Sender: AUROBINDO
  Company Number: CA-AUROBINDO-AUR-APL-2025-048152

PATIENT
  Age: 45 Year
  Sex: Female

DRUGS (1)
  1. LIDOCAINE [Suspect]
     Active Substance: LIDOCAINE
     Indication: Pain management
     Dosage: 15 MILLILITER, ONCE A DAY
     Route: 030

REACTIONS (2)
  - Hypoaesthesia oral [Recovered/Resolved]
  - Ocular discomfort [Recovered/Resolved]
